FAERS Safety Report 16228399 (Version 1)
Quarter: 2019Q2

REPORT INFORMATION
  Report Type: Spontaneous
  Country: US (occurrence: US)
  Receive Date: 20190422
  Receipt Date: 20190422
  Transmission Date: 20190711
  Serious: Yes (Death)
  Sender: FDA-Public Use
  Company Number: None

PATIENT
  Age: 60 Year
  Sex: Male
  Weight: 123 kg

DRUGS (10)
  1. ACTEMRA [Suspect]
     Active Substance: TOCILIZUMAB
     Indication: RHEUMATOID ARTHRITIS
     Dosage: ?          OTHER FREQUENCY:WEEKLY;?
     Route: 058
  2. OMEPRAZOLE 40 MG PO DAILY [Concomitant]
  3. PREDNISONE 10 MG PO BID [Concomitant]
  4. INSULIN GLARGINE 56 UNITS SQ AT BEDTIME [Concomitant]
  5. METHOTREXATE 2.5 MG PO WEEKLY [Concomitant]
  6. RANITIDINE 300 MG PO DAILY [Concomitant]
  7. FOLIC ACID 0.5 MG PO DAILY [Concomitant]
  8. PREGABALIN 75 MG PO BID [Concomitant]
  9. DULOXETINE 60 MG PO DAILY [Concomitant]
  10. METFORMIN 500 MG PO BID [Concomitant]

REACTIONS (3)
  - Pupillary light reflex tests abnormal [None]
  - Meningitis cryptococcal [None]
  - Cerebral infarction [None]

NARRATIVE: CASE EVENT DATE: 20181209
